FAERS Safety Report 8830034 (Version 2)
Quarter: 2012Q4

REPORT INFORMATION
  Report Type: 
  Country: US (occurrence: US)
  Receive Date: 20121008
  Receipt Date: 20121219
  Transmission Date: 20130627
  Serious: Yes (Hospitalization)
  Sender: FDA-Public Use
  Company Number: US-B.I. PHARMACEUTICALS,INC./RIDGEFIELD-2012-BP-23953BP

PATIENT
  Sex: Female
  Weight: 72 kg

DRUGS (7)
  1. SPIRIVA [Suspect]
     Indication: CHRONIC OBSTRUCTIVE PULMONARY DISEASE
     Dosage: 18 mcg
     Route: 055
     Dates: start: 201004
  2. CELEBREX [Concomitant]
     Indication: OSTEOARTHRITIS
     Dosage: 200 mg
     Route: 048
     Dates: start: 2004
  3. LIPITOR [Concomitant]
     Indication: BLOOD CHOLESTEROL INCREASED
     Dosage: 10 mg
     Route: 048
     Dates: start: 2004
  4. LIPITOR [Concomitant]
     Indication: LIPIDS
  5. PREMPRO [Concomitant]
     Indication: PROPHYLAXIS
     Route: 048
     Dates: start: 1995
  6. DIOVAN HCT [Concomitant]
     Indication: HYPERTENSION
     Route: 048
     Dates: start: 2004
  7. PROTONIX [Concomitant]
     Indication: GASTROOESOPHAGEAL REFLUX DISEASE
     Dosage: 40 mg
     Route: 048
     Dates: start: 2005

REACTIONS (3)
  - Arthritis [Unknown]
  - Arthritis [Unknown]
  - Product quality issue [Unknown]
